FAERS Safety Report 6266552-4 (Version None)
Quarter: 2009Q3

REPORT INFORMATION
  Report Type: 
  Country: None (occurrence: None)
  Receive Date: 20090710
  Receipt Date: 20090707
  Transmission Date: 20100115
  Serious: Yes (Hospitalization, Other)
  Sender: FDA-Public Use
  Company Number: 2009SP013775

PATIENT
  Age: 41 Year
  Sex: Female

DRUGS (4)
  1. MIRALAX [Suspect]
     Indication: COLONOSCOPY
     Dosage: ONCE; PO
     Route: 048
     Dates: start: 20090521, end: 20090521
  2. MIRALAX [Suspect]
     Indication: OFF LABEL USE
     Dosage: ONCE; PO
     Route: 048
     Dates: start: 20090521, end: 20090521
  3. DULCOLAX [Suspect]
     Indication: COLONOSCOPY
     Dosage: PO
     Route: 048
  4. ZYRTEC [Concomitant]

REACTIONS (7)
  - FLUSHING [None]
  - PHARYNGEAL OEDEMA [None]
  - STOMATITIS [None]
  - SWOLLEN TONGUE [None]
  - SYNCOPE [None]
  - THROAT IRRITATION [None]
  - URTICARIA [None]
